FAERS Safety Report 9879540 (Version 1)
Quarter: 2014Q1

REPORT INFORMATION
  Report Type: Spontaneous
  Country: US (occurrence: US)
  Receive Date: 20140206
  Receipt Date: 20140206
  Transmission Date: 20141002
  Serious: Yes (Hospitalization)
  Sender: FDA-Public Use
  Company Number: US-ROXANE LABORATORIES, INC.-2014-RO-00151RO

PATIENT
  Age: 39 Year
  Sex: Male

DRUGS (2)
  1. PREDNISONE [Suspect]
     Indication: SARCOIDOSIS
     Dosage: 40 MG
  2. PREDNISONE [Suspect]
     Dosage: 25 MG

REACTIONS (2)
  - Pneumatosis intestinalis [Unknown]
  - Diabetes mellitus [Unknown]
